FAERS Safety Report 11728981 (Version 2)
Quarter: 2015Q4

REPORT INFORMATION
  Report Type: Report from Study
  Country: ES (occurrence: ES)
  Receive Date: 20151112
  Receipt Date: 20151123
  Transmission Date: 20160304
  Serious: Yes (Hospitalization)
  Sender: FDA-Public Use
  Company Number: ES-GILEAD-2015-0180796

PATIENT
  Age: 66 Year
  Sex: Female

DRUGS (10)
  1. PRIMPERAN [Concomitant]
     Active Substance: METOCLOPRAMIDE HYDROCHLORIDE
  2. TERLIPRESSIN [Concomitant]
     Active Substance: TERLIPRESSIN
     Dosage: 3 MG, QD
     Route: 042
     Dates: start: 20141022, end: 20141023
  3. SOFOSBUVIR [Suspect]
     Active Substance: SOFOSBUVIR
     Indication: HEPATITIS C
     Dosage: 400 MBQ, QD
     Route: 048
     Dates: start: 201408, end: 20141021
  4. OMEPRAZOLE. [Concomitant]
     Active Substance: OMEPRAZOLE
  5. ALBUMIN [Concomitant]
     Active Substance: ALBUMIN (HUMAN)
  6. FUROSEMIDE. [Concomitant]
     Active Substance: FUROSEMIDE
  7. TERLIPRESSIN [Concomitant]
     Active Substance: TERLIPRESSIN
     Indication: HEPATORENAL SYNDROME
     Dosage: 6 MG, QD
     Route: 042
     Dates: start: 20141016, end: 20141022
  8. MYCOPHENOLIC ACID. [Concomitant]
     Active Substance: MYCOPHENOLIC ACID
     Indication: LIVER TRANSPLANT
     Route: 048
     Dates: start: 201404
  9. ALDA [Concomitant]
  10. DAKLINZA [Suspect]
     Active Substance: DACLATASVIR
     Indication: HEPATITIS C
     Dosage: 60 MG, QD
     Route: 048
     Dates: start: 201408, end: 20141021

REACTIONS (1)
  - Hyperglycaemia [Unknown]

NARRATIVE: CASE EVENT DATE: 20141022
